FAERS Safety Report 8430558 (Version 4)
Quarter: 2012Q4

REPORT INFORMATION
  Report Type: 
  Country: DE (occurrence: DE)
  Receive Date: 20120228
  Receipt Date: 20120828
  Transmission Date: 20130627
  Serious: Yes (Other)
  Sender: FDA-Public Use
  Company Number: DE-CELGENEUS-062-21880-12021801

PATIENT
  Age: 64 Year
  Sex: Male
  Weight: 87 kg

DRUGS (15)
  1. REVLIMID [Suspect]
     Indication: MULTIPLE MYELOMA
     Dosage: 25 Milligram
     Route: 048
     Dates: start: 20110510, end: 20110801
  2. DEXAMETHASONE [Suspect]
     Indication: MULTIPLE MYELOMA
     Dosage: 40 Milligram
     Route: 065
     Dates: start: 20110510, end: 20110802
  3. LENOGRASTIM [Suspect]
     Indication: MULTIPLE MYELOMA
     Route: 058
     Dates: start: 20110821, end: 20110830
  4. MELPHALAN [Suspect]
     Indication: MULTIPLE MYELOMA
     Route: 041
     Dates: start: 20110920
  5. CYCLOPHOSPHAMIDE [Suspect]
     Indication: STEM CELL MOBILIZATION
     Route: 041
     Dates: start: 20110817, end: 20110818
  6. ETOPOSIDE [Suspect]
     Indication: STEM CELL MOBILIZATION
     Route: 041
     Dates: start: 20110817, end: 20110819
  7. MICARDIS [Concomitant]
     Indication: HYPERTENSION
     Dosage: 80 Milligram
     Route: 048
     Dates: start: 20110708, end: 201201
  8. LORATADIN [Concomitant]
     Indication: INFECTION PROPHYLAXIS
     Dosage: 10 Milligram
     Route: 048
     Dates: start: 201201, end: 201201
  9. OXAZEPAM [Concomitant]
     Indication: SLEEP DISORDER
     Route: 048
     Dates: start: 201201, end: 201201
  10. OMEPRAZOLE [Concomitant]
     Indication: REFLUX OESOPHAGITIS
     Dosage: 40 Milligram
     Route: 048
     Dates: start: 2000
  11. DILTIAZEM [Concomitant]
     Indication: HYPERTENSION
     Dosage: 180 Milligram
     Route: 048
     Dates: start: 20110325
  12. ASA [Concomitant]
     Indication: THROMBOSIS PROPHYLAXIS
     Dosage: 100 Milligram
     Route: 048
     Dates: start: 20110509
  13. SALBUTAMOL [Concomitant]
     Indication: CHRONIC OBSTRUCTIVE PULMONARY DISEASE
     Dosage: 1 Hub
     Route: 048
     Dates: start: 201201
  14. COTRIM FORTE [Concomitant]
     Indication: INFECTION PROPHYLAXIS
     Route: 048
     Dates: start: 201109
  15. ACICLOVIR [Concomitant]
     Indication: INFECTION PROPHYLAXIS
     Dosage: 400 Milligram
     Route: 048
     Dates: start: 2012

REACTIONS (1)
  - Malignant melanoma in situ [Recovered/Resolved]
